FAERS Safety Report 5072666-7 (Version None)
Quarter: 2006Q3

REPORT INFORMATION
  Report Type: 
  Country: None (occurrence: None)
  Receive Date: 20060807
  Receipt Date: 20060801
  Transmission Date: 20061208
  Serious: Yes (Other)
  Sender: FDA-Public Use
  Company Number: DE-GLAXOSMITHKLINE-D0050502A

PATIENT
  Age: 43 Year
  Sex: Female
  Weight: 57 kg

DRUGS (4)
  1. TELZIR [Suspect]
     Indication: HIV INFECTION
     Dosage: 700MG TWICE PER DAY
     Route: 048
     Dates: start: 20050309, end: 20060105
  2. KIVEXA [Suspect]
     Indication: HIV INFECTION
     Dosage: 1TAB PER DAY
     Route: 048
     Dates: start: 20050509, end: 20050520
  3. TRUVADA [Suspect]
     Indication: HIV INFECTION
     Dosage: 445MG PER DAY
     Route: 048
     Dates: start: 20050309, end: 20060105
  4. NORVIR [Concomitant]
     Indication: HIV INFECTION
     Route: 065
     Dates: start: 20050309

REACTIONS (8)
  - ABDOMINAL PAIN [None]
  - FATIGUE [None]
  - HYPERHIDROSIS [None]
  - HYPERSENSITIVITY [None]
  - MALAISE [None]
  - NAUSEA [None]
  - RASH [None]
  - VOMITING [None]
